FAERS Safety Report 4328007-3 (Version None)
Quarter: 2004Q1

REPORT INFORMATION
  Report Type: 
  Country: None (occurrence: None)
  Receive Date: 20040325
  Receipt Date: 20040317
  Transmission Date: 20041129
  Serious: Yes (Death)
  Sender: FDA-Public Use
  Company Number: US-JNJFOC-20031204106

PATIENT
  Age: 69 Year
  Sex: Female

DRUGS (1)
  1. RISPERDAL [Suspect]
     Dosage: ORAL
     Route: 048

REACTIONS (3)
  - CARDIAC DEATH [None]
  - CEREBROVASCULAR ACCIDENT [None]
  - MYOCARDIAL INFARCTION [None]
